FAERS Safety Report 6752913-3 (Version None)
Quarter: 2010Q2

REPORT INFORMATION
  Report Type: 
  Country: None (occurrence: None)
  Receive Date: 20100602
  Receipt Date: 20100602
  Transmission Date: 20101027
  Serious: No
  Sender: FDA-Public Use
  Company Number: None

PATIENT

DRUGS (1)
  1. TOPAMAX [Suspect]
     Dosage: 25 X 4 X 2

REACTIONS (2)
  - HYPERSENSITIVITY [None]
  - UNEVALUABLE EVENT [None]
